FAERS Safety Report 8100505-6 (Version None)
Quarter: 2012Q1

REPORT INFORMATION
  Report Type: 
  Country: None (occurrence: None)
  Receive Date: 20120129
  Receipt Date: 20111110
  Transmission Date: 20120608
  Serious: No
  Sender: FDA-Public Use
  Company Number: US-ABBOTT-11P-163-0873233-00

PATIENT
  Age: 77 Year
  Sex: Male

DRUGS (11)
  1. ALLOPURINOL [Concomitant]
     Indication: PRODUCT USED FOR UNKNOWN INDICATION
  2. VITAMIN D [Concomitant]
     Indication: PRODUCT USED FOR UNKNOWN INDICATION
  3. CLOBETASOL PROPIONATE [Concomitant]
     Indication: PRODUCT USED FOR UNKNOWN INDICATION
  4. ZEMPLAR [Concomitant]
     Indication: PRODUCT USED FOR UNKNOWN INDICATION
  5. HUMIRA [Suspect]
     Indication: PSORIASIS
     Dates: start: 20110810
  6. BETAMETHASONE [Concomitant]
     Indication: PRODUCT USED FOR UNKNOWN INDICATION
  7. UNKNOWN STATIN [Concomitant]
     Indication: BLOOD CHOLESTEROL INCREASED
     Route: 048
  8. UNKNOWN SHAMPOO [Concomitant]
     Indication: SKIN PLAQUE
  9. BUMETANIDE [Concomitant]
     Indication: RENAL IMPAIRMENT
     Route: 048
  10. HUMIRA [Suspect]
     Dates: start: 20110901
  11. ATENOLOL [Concomitant]
     Indication: HYPERTENSION

REACTIONS (3)
  - PSORIASIS [None]
  - DRUG INEFFECTIVE [None]
  - THERAPY REGIMEN CHANGED [None]
